FAERS Safety Report 8444303-2 (Version None)
Quarter: 2012Q2

REPORT INFORMATION
  Report Type: 
  Country: None (occurrence: None)
  Receive Date: 20120618
  Receipt Date: 20120615
  Transmission Date: 20120825
  Serious: Yes (Hospitalization)
  Sender: FDA-Public Use
  Company Number: IN-PFIZER INC-2012137057

PATIENT
  Age: 35 Year
  Sex: Male

DRUGS (1)
  1. SILDENAFIL CITRATE [Suspect]
     Indication: DISTURBANCE IN SEXUAL AROUSAL
     Dosage: 50 MG, UNK
     Route: 048

REACTIONS (2)
  - FOOD INTERACTION [None]
  - PRIAPISM [None]
